FAERS Safety Report 5653867-3 (Version None)
Quarter: 2008Q1

REPORT INFORMATION
  Report Type: 
  Country: None (occurrence: None)
  Receive Date: 20080306
  Receipt Date: 20080227
  Transmission Date: 20080703
  Serious: Yes (Hospitalization)
  Sender: FDA-Public Use
  Company Number: FR-ASTRAZENECA-2007CG01784

PATIENT
  Age: 21418 Day
  Sex: Male
  Weight: 107 kg

DRUGS (2)
  1. CRESTOR [Suspect]
     Indication: HYPERCHOLESTEROLAEMIA
     Route: 048
     Dates: start: 20071009, end: 20071108
  2. VASTAREL [Concomitant]

REACTIONS (1)
  - TENDON RUPTURE [None]
